FAERS Safety Report 5421841-8 (Version None)
Quarter: 2007Q3

REPORT INFORMATION
  Report Type: 
  Country: None (occurrence: None)
  Receive Date: 20070820
  Receipt Date: 20070710
  Transmission Date: 20080115
  Serious: Yes (Death, Life-Threatening, Other)
  Sender: FDA-Public Use
  Company Number: 2007US001934

PATIENT
  Age: 38 Year

DRUGS (2)
  1. FK506 - BONE MARROW TRANSPLANT(TACROLIMUS) INJECTION [Suspect]
     Indication: PROPHYLAXIS
     Dosage: 0.03 MG/KG, UID/QD,
  2. METHOTREXATE (METHOTREXATE SODIUM) [Concomitant]

REACTIONS (9)
  - ACUTE GRAFT VERSUS HOST DISEASE [None]
  - ASPERGILLOSIS [None]
  - AZOTAEMIA [None]
  - BLOOD LACTATE DEHYDROGENASE INCREASED [None]
  - CONFUSIONAL STATE [None]
  - MUCOSAL INFLAMMATION [None]
  - POLYCHROMASIA [None]
  - RASH [None]
  - THROMBOTIC THROMBOCYTOPENIC PURPURA [None]
